FAERS Safety Report 24345842 (Version 1)
Quarter: 2024Q3

REPORT INFORMATION
  Report Type: Spontaneous
  Country: IT (occurrence: IT)
  Receive Date: 20240920
  Receipt Date: 20240920
  Transmission Date: 20241017
  Serious: Yes (Other)
  Sender: TEVA
  Company Number: None

PATIENT
  Age: 71 Year
  Sex: Female

DRUGS (3)
  1. OXALIPLATIN [Suspect]
     Active Substance: OXALIPLATIN
     Indication: Rectal neoplasm
     Route: 042
     Dates: start: 20240529, end: 20240529
  2. IRINOTECAN [Suspect]
     Active Substance: IRINOTECAN
     Indication: Rectal neoplasm
     Route: 042
     Dates: start: 20240529, end: 20240529
  3. FLUOROURACIL [Suspect]
     Active Substance: FLUOROURACIL
     Indication: Rectal neoplasm
     Route: 042
     Dates: start: 20240529, end: 20240529

REACTIONS (6)
  - Neutropenia [Recovered/Resolved]
  - Paraesthesia [Recovering/Resolving]
  - Leukopenia [Recovered/Resolved]
  - Anaemia [Recovered/Resolved]
  - Nausea [Recovered/Resolved]
  - Asthenia [Recovering/Resolving]

NARRATIVE: CASE EVENT DATE: 20240603
